FAERS Safety Report 16315997 (Version 12)
Quarter: 2021Q4

REPORT INFORMATION
  Report Type: Spontaneous
  Country: US (occurrence: US)
  Receive Date: 20190515
  Receipt Date: 20211001
  Transmission Date: 20220303
  Serious: Yes (Other)
  Sender: FDA-Public Use
  Company Number: US-SA-2019SA126850

PATIENT
  Age: 11 Year
  Sex: Male
  Weight: 72.56 kg

DRUGS (26)
  1. FABRAZYME [Suspect]
     Active Substance: AGALSIDASE BETA
     Indication: Fabry^s disease
     Dosage: 1.04 MG/KG, QOW (65MG)
     Route: 041
     Dates: start: 20150423
  2. FABRAZYME [Suspect]
     Active Substance: AGALSIDASE BETA
     Indication: Lipidosis
     Dosage: 0.82 MG/KG, QOW
     Route: 041
     Dates: start: 20190405
  3. FABRAZYME [Suspect]
     Active Substance: AGALSIDASE BETA
     Dosage: 0.89 MG/KG, QOW
     Route: 041
  4. ACETAMINOPHEN [Concomitant]
     Active Substance: ACETAMINOPHEN
     Indication: Premedication
     Dosage: 325 MG
     Route: 048
     Dates: start: 20190419
  5. ACETAMINOPHEN [Concomitant]
     Active Substance: ACETAMINOPHEN
     Dosage: 1 TAB, PRN
     Route: 048
     Dates: start: 20190725
  6. DIPHENHYDRAMINE [Concomitant]
     Active Substance: DIPHENHYDRAMINE
     Indication: Anaphylactic reaction
     Dosage: 12.5 MG, PRN
     Route: 048
     Dates: start: 20190419
  7. DIPHENHYDRAMINE [Concomitant]
     Active Substance: DIPHENHYDRAMINE
     Dosage: 12.5 MG, PRN
     Route: 048
     Dates: start: 20190405
  8. SODIUM CHLORIDE [Concomitant]
     Active Substance: SODIUM CHLORIDE
     Dosage: 0.9 %; UNK
     Route: 042
     Dates: start: 20190419
  9. SODIUM CHLORIDE [Concomitant]
     Active Substance: SODIUM CHLORIDE
     Dosage: 0.9 %; UNK
     Route: 042
     Dates: start: 20190405
  10. STERILE WATER [Concomitant]
     Active Substance: WATER
     Dosage: 1 EACH
     Route: 042
     Dates: start: 20190405
  11. EPINEPHRINE [Concomitant]
     Active Substance: EPINEPHRINE
     Indication: Anaphylactic reaction
     Dosage: 0.3 MG, PRN
     Route: 030
     Dates: start: 20190405
  12. VITAMIN D3 [Concomitant]
     Active Substance: CHOLECALCIFEROL
     Dosage: 1 CAP, QD
     Route: 048
     Dates: start: 20190419
  13. VITAMIN D3 [Concomitant]
     Active Substance: CHOLECALCIFEROL
     Dosage: 1 CAP; QD
     Route: 048
     Dates: start: 20190405
  14. VITAMINS NOS [Concomitant]
     Active Substance: VITAMINS
     Dosage: 2 TAB, QD
     Route: 048
     Dates: start: 20160122
  15. CLARITHROMYCIN [Concomitant]
     Active Substance: CLARITHROMYCIN
     Indication: Premedication
     Dosage: 10MG, UNK
     Route: 048
     Dates: start: 20151111
  16. MEDROL [Concomitant]
     Active Substance: METHYLPREDNISOLONE
     Indication: Anaphylactic reaction
     Dosage: 25 MG, PRN
     Route: 042
     Dates: start: 20151110
  17. SOLU-MEDROL [Concomitant]
     Active Substance: METHYLPREDNISOLONE SODIUM SUCCINATE
     Indication: Anaphylactic reaction
     Dosage: 1 MG/KG, PRN
     Route: 042
     Dates: start: 20190405
  18. IBUPROFEN [Concomitant]
     Active Substance: IBUPROFEN
     Dosage: 1 DF, PRN
     Route: 048
     Dates: start: 20190725
  19. LMX4 [Concomitant]
     Active Substance: LIDOCAINE
     Dosage: 4 %
     Route: 061
     Dates: start: 20190405
  20. VITAMIN C [Concomitant]
     Active Substance: ASCORBIC ACID
  21. LORATADINE [Concomitant]
     Active Substance: LORATADINE
  22. CHILDREN^S MULTIVITAMIN [Concomitant]
  23. AMOXICILLIN\CLAVULANATE POTASSIUM [Concomitant]
     Active Substance: AMOXICILLIN\CLAVULANATE POTASSIUM
  24. CORTISPORIN-TC [Concomitant]
     Active Substance: COLISTIN SULFATE\HYDROCORTISONE ACETATE\NEOMYCIN SULFATE\THONZONIUM BROMIDE
  25. GLICLAZIDE [Concomitant]
     Active Substance: GLICLAZIDE
  26. SODIUM CHLORIDE [Concomitant]
     Active Substance: SODIUM CHLORIDE

REACTIONS (11)
  - Neuropathy peripheral [Unknown]
  - Throat irritation [Unknown]
  - Anaemia [Unknown]
  - Blood triglycerides increased [Unknown]
  - Neuralgia [Not Recovered/Not Resolved]
  - Pain [Recovered/Resolved]
  - Paraesthesia [Recovered/Resolved]
  - Dyspnoea exertional [Unknown]
  - Fatigue [Unknown]
  - Somnolence [Unknown]
  - Product dose omission issue [Unknown]

NARRATIVE: CASE EVENT DATE: 20190419
